FAERS Safety Report 12835388 (Version 1)
Quarter: 2016Q4

REPORT INFORMATION
  Report Type: Report from Study
  Country: NL (occurrence: NL)
  Receive Date: 20161011
  Receipt Date: 20161011
  Transmission Date: 20170207
  Serious: Yes (Hospitalization)
  Sender: FDA-Public Use
  Company Number: NL-ROCHE-1839396

PATIENT
  Age: 59 Year
  Sex: Female

DRUGS (7)
  1. PERTUZUMAB [Suspect]
     Active Substance: PERTUZUMAB
     Dosage: ON 02/JUN/2016, RECEIVED MOST RECENT DOSE.
     Route: 042
  2. TRASTUZUMAB [Suspect]
     Active Substance: TRASTUZUMAB
     Indication: HER-2 POSITIVE BREAST CANCER
     Dosage: ON 16/SEP/2016, MOST RECENT DOSE.?DAY 1 (DAY 8 TO DAY 15).
     Route: 042
     Dates: start: 20151209
  3. TAMOXIFEN [Concomitant]
     Active Substance: TAMOXIFEN
  4. PERTUZUMAB [Suspect]
     Active Substance: PERTUZUMAB
     Indication: HER-2 POSITIVE BREAST CANCER
     Dosage: LOADING DOSE
     Route: 042
     Dates: start: 20151209
  5. TRASTUZUMAB [Suspect]
     Active Substance: TRASTUZUMAB
     Dosage: ON 16/SEP/2016, MOST RECENT DOSE.?DAY 1 (DAY 8 TO DAY 15).
     Route: 042
  6. PACLITAXEL. [Suspect]
     Active Substance: PACLITAXEL
     Indication: HER-2 POSITIVE BREAST CANCER
     Dosage: ON 02/JUN/2016, RECEIVED MOST RECENT DOSE.?DAY1 TO DAY 8
     Route: 042
     Dates: start: 20151209, end: 20160602
  7. CARBOPLATIN. [Suspect]
     Active Substance: CARBOPLATIN
     Indication: HER-2 POSITIVE BREAST CANCER
     Dosage: ON 02/JUN/2016, RECEIVED MOST RECENT DOSE.?DAY1 TO DAY 8
     Route: 042

REACTIONS (1)
  - Pulmonary embolism [Recovered/Resolved with Sequelae]

NARRATIVE: CASE EVENT DATE: 20160916
